FAERS Safety Report 7578278-5 (Version None)
Quarter: 2011Q2

REPORT INFORMATION
  Report Type: 
  Country: None (occurrence: None)
  Receive Date: 20110628
  Receipt Date: 20110621
  Transmission Date: 20111010
  Serious: Yes (Hospitalization)
  Sender: FDA-Public Use
  Company Number: US-JNJFOC-20110610892

PATIENT
  Age: 4 Decade
  Sex: Female

DRUGS (2)
  1. NUCYNTA [Suspect]
     Indication: PAIN
     Route: 048
     Dates: end: 20110101
  2. LIDODERM [Concomitant]
     Route: 062

REACTIONS (2)
  - PRODUCT QUALITY ISSUE [None]
  - ACCIDENTAL OVERDOSE [None]
